FAERS Safety Report 24961223 (Version 4)
Quarter: 2025Q1

REPORT INFORMATION
  Report Type: Spontaneous
  Country: BR (occurrence: BR)
  Receive Date: 20250212
  Receipt Date: 20250305
  Transmission Date: 20250408
  Serious: Yes (Other)
  Sender: GLAXOSMITHKLINE
  Company Number: BR-GSK-BR2025AMR015365

PATIENT

DRUGS (2)
  1. SERETIDE [Suspect]
     Active Substance: FLUTICASONE PROPIONATE\SALMETEROL XINAFOATE
     Indication: Product used for unknown indication
  2. SERETIDE [Suspect]
     Active Substance: FLUTICASONE PROPIONATE\SALMETEROL XINAFOATE
     Indication: Product used for unknown indication

REACTIONS (7)
  - Pneumonia [Not Recovered/Not Resolved]
  - Emphysema [Not Recovered/Not Resolved]
  - Condition aggravated [Not Recovered/Not Resolved]
  - Metal poisoning [Not Recovered/Not Resolved]
  - Malaise [Unknown]
  - Product use issue [Unknown]
  - Product complaint [Unknown]
